FAERS Safety Report 17551084 (Version 41)
Quarter: 2025Q1

REPORT INFORMATION
  Report Type: Report from Study
  Country: US (occurrence: US)
  Receive Date: 20200317
  Receipt Date: 20250206
  Transmission Date: 20250409
  Serious: Yes (Other)
  Sender: TAKEDA
  Company Number: US-SHIRE-US202009671

PATIENT
  Age: 68 Year
  Sex: Female
  Weight: 31 kg

DRUGS (38)
  1. TEDUGLUTIDE [Suspect]
     Active Substance: TEDUGLUTIDE
     Indication: Short-bowel syndrome
     Dosage: 2 MILLIGRAM, QD
     Dates: start: 20180206
  2. TEDUGLUTIDE [Suspect]
     Active Substance: TEDUGLUTIDE
     Indication: Illness
     Dosage: UNK UNK, QD
     Dates: start: 20180404
  3. TEDUGLUTIDE [Suspect]
     Active Substance: TEDUGLUTIDE
     Dosage: 2 MILLIGRAM, QD
  4. TEDUGLUTIDE [Suspect]
     Active Substance: TEDUGLUTIDE
     Dosage: 2 MILLIGRAM, QD
  5. TEDUGLUTIDE [Suspect]
     Active Substance: TEDUGLUTIDE
     Dosage: 2 MILLIGRAM, QD
  6. TEDUGLUTIDE [Suspect]
     Active Substance: TEDUGLUTIDE
     Dosage: 2 MILLIGRAM, QD
  7. TEDUGLUTIDE [Suspect]
     Active Substance: TEDUGLUTIDE
     Dosage: 2 MILLIGRAM, QD
  8. TEDUGLUTIDE [Suspect]
     Active Substance: TEDUGLUTIDE
     Dosage: 2 MILLIGRAM, QD
     Dates: end: 202401
  9. TEDUGLUTIDE [Suspect]
     Active Substance: TEDUGLUTIDE
     Dosage: 2 MILLIGRAM, QD
     Dates: start: 20240721
  10. TEDUGLUTIDE [Suspect]
     Active Substance: TEDUGLUTIDE
     Dosage: 2 MILLIGRAM, QD
  11. TEDUGLUTIDE [Suspect]
     Active Substance: TEDUGLUTIDE
     Dosage: 2 MILLIGRAM, QD
  12. TEDUGLUTIDE [Suspect]
     Active Substance: TEDUGLUTIDE
     Dosage: 2 MILLIGRAM, QD
  13. TEDUGLUTIDE [Suspect]
     Active Substance: TEDUGLUTIDE
     Dosage: 2 MILLIGRAM, QD
  14. GABAPENTIN [Concomitant]
     Active Substance: GABAPENTIN
  15. MIDODRINE HYDROCHLORIDE [Concomitant]
     Active Substance: MIDODRINE HYDROCHLORIDE
  16. MIDODRINE HYDROCHLORIDE [Concomitant]
     Active Substance: MIDODRINE HYDROCHLORIDE
  17. VANCOMYCIN HYDROCHLORIDE [Concomitant]
     Active Substance: VANCOMYCIN HYDROCHLORIDE
  18. CARAFATE [Concomitant]
     Active Substance: SUCRALFATE
  19. SUCRALFATE [Concomitant]
     Active Substance: SUCRALFATE
  20. FLUDROCORTISONE ACETATE [Concomitant]
     Active Substance: FLUDROCORTISONE ACETATE
  21. PREDNISONE [Concomitant]
     Active Substance: PREDNISONE
  22. BIOTIN [Concomitant]
     Active Substance: BIOTIN
  23. HERBALS\TURMERIC [Concomitant]
     Active Substance: HERBALS\TURMERIC
  24. AZELASTINE HYDROCHLORIDE [Concomitant]
     Active Substance: AZELASTINE HYDROCHLORIDE
  25. DIPHENHYDRAMINE HYDROCHLORIDE [Concomitant]
     Active Substance: DIPHENHYDRAMINE HYDROCHLORIDE
  26. SERTRALINE HYDROCHLORIDE [Concomitant]
     Active Substance: SERTRALINE HYDROCHLORIDE
  27. ALPRAZOLAM [Concomitant]
     Active Substance: ALPRAZOLAM
  28. ACETAMINOPHEN [Concomitant]
     Active Substance: ACETAMINOPHEN
  29. DICYCLOMINE HYDROCHLORIDE [Concomitant]
     Active Substance: DICYCLOMINE HYDROCHLORIDE
  30. PROLIA [Concomitant]
     Active Substance: DENOSUMAB
  31. POLYETHYLENE GLYCOL [Concomitant]
     Active Substance: POLYETHYLENE GLYCOL
  32. VITAMIN B12 [Concomitant]
     Active Substance: CYANOCOBALAMIN
  33. METFORMIN HYDROCHLORIDE [Concomitant]
     Active Substance: METFORMIN HYDROCHLORIDE
  34. TROSPIUM CHLORIDE [Concomitant]
     Active Substance: TROSPIUM CHLORIDE
  35. ONDANSETRON HYDROCHLORIDE [Concomitant]
     Active Substance: ONDANSETRON HYDROCHLORIDE
  36. PROTONIX [Concomitant]
     Active Substance: PANTOPRAZOLE SODIUM
  37. TYLENOL [Concomitant]
     Active Substance: ACETAMINOPHEN
  38. INTRALIPID [Concomitant]
     Active Substance: EGG PHOSPHOLIPIDS\GLYCERIN\SOYBEAN OIL

REACTIONS (52)
  - Transient ischaemic attack [Unknown]
  - Seizure [Unknown]
  - Clostridium difficile infection [Unknown]
  - Osteomyelitis [Unknown]
  - Postoperative wound infection [Recovered/Resolved]
  - Type 2 diabetes mellitus [Unknown]
  - Impaired gastric emptying [Unknown]
  - Autonomic neuropathy [Unknown]
  - Abdominal distension [Unknown]
  - Malaise [Unknown]
  - Fall [Unknown]
  - Eating disorder [Unknown]
  - Weight decreased [Not Recovered/Not Resolved]
  - Hypotonia [Unknown]
  - Gastrointestinal injury [Unknown]
  - Acute sinusitis [Unknown]
  - Neoplasm progression [Recovered/Resolved]
  - Dyspepsia [Not Recovered/Not Resolved]
  - Oesophageal motility disorder [Not Recovered/Not Resolved]
  - Diarrhoea [Not Recovered/Not Resolved]
  - Asthma [Not Recovered/Not Resolved]
  - Dental caries [Not Recovered/Not Resolved]
  - Immunisation reaction [Recovered/Resolved]
  - COVID-19 [Recovering/Resolving]
  - Food allergy [Unknown]
  - Mood swings [Unknown]
  - Intestinal dilatation [Unknown]
  - General physical health deterioration [Not Recovered/Not Resolved]
  - Herpes zoster [Unknown]
  - Pain [Not Recovered/Not Resolved]
  - Abdominal discomfort [Not Recovered/Not Resolved]
  - Gastrointestinal pain [Not Recovered/Not Resolved]
  - Emotional distress [Unknown]
  - Drug hypersensitivity [Unknown]
  - Multiple allergies [Unknown]
  - Dry eye [Unknown]
  - Death of relative [Not Recovered/Not Resolved]
  - Inability to afford medication [Unknown]
  - Blood potassium decreased [Unknown]
  - Blood pressure decreased [Unknown]
  - Blood glucose decreased [Unknown]
  - Gastrointestinal disorder [Unknown]
  - Hiatus hernia [Unknown]
  - Product dose omission issue [Recovered/Resolved]
  - Appetite disorder [Unknown]
  - Anxiety [Not Recovered/Not Resolved]
  - Injection site pain [Not Recovered/Not Resolved]
  - Abdominal pain upper [Unknown]
  - Decreased appetite [Not Recovered/Not Resolved]
  - Nausea [Not Recovered/Not Resolved]
  - Vomiting [Unknown]
  - Malaise [Unknown]

NARRATIVE: CASE EVENT DATE: 20240905
